FAERS Safety Report 9502651 (Version 2)
Quarter: 2013Q3

REPORT INFORMATION
  Report Type: Spontaneous
  Country: TR (occurrence: TR)
  Receive Date: 20130906
  Receipt Date: 20130906
  Transmission Date: 20140515
  Serious: Yes (Hospitalization, Other)
  Sender: FDA-Public Use
  Company Number: TR-AMGEN-TURSP2012073042

PATIENT
  Age: 8 Year
  Sex: Female

DRUGS (4)
  1. ENBREL [Suspect]
     Indication: RHEUMATOID ARTHRITIS
     Dosage: 16.5 MG, QWK
     Route: 058
     Dates: start: 20101130, end: 201307
  2. CORTISONE /00014602/ [Suspect]
     Indication: PRODUCT USED FOR UNKNOWN INDICATION
     Dosage: 1X1 DAILY FOR 15 DAYS THEN 1X1 FOR EVERY OTHER DAY
     Route: 042
  3. CORTISONE [Suspect]
     Dosage: 1X1 DAILY FOR 15 DAYS THEN 1X1 FOR EVERY OTHER DAY
     Route: 048
  4. DELTACORTRIL [Concomitant]
     Dosage: 5 MG, 2X/DAY
     Route: 048
     Dates: start: 2008, end: 201307

REACTIONS (8)
  - Loss of consciousness [Not Recovered/Not Resolved]
  - Movement disorder [Not Recovered/Not Resolved]
  - Vomiting [Unknown]
  - Decreased appetite [Unknown]
  - Injection site bruising [Recovered/Resolved]
  - Infection [Unknown]
  - Injection site haemorrhage [Recovered/Resolved]
  - Influenza [Not Recovered/Not Resolved]
